FAERS Safety Report 23347495 (Version 1)
Quarter: 2023Q4

REPORT INFORMATION
  Report Type: Spontaneous
  Country: US (occurrence: US)
  Receive Date: 20231228
  Receipt Date: 20231228
  Transmission Date: 20240109
  Serious: No
  Sender: FDA-Public Use
  Company Number: US-Merz Pharmaceuticals GmbH-23-03447

PATIENT

DRUGS (4)
  1. XEOMIN [Suspect]
     Active Substance: INCOBOTULINUMTOXINA
     Indication: Product used for unknown indication
     Dates: start: 2023, end: 2023
  2. XEOMIN [Suspect]
     Active Substance: INCOBOTULINUMTOXINA
  3. XEOMIN [Suspect]
     Active Substance: INCOBOTULINUMTOXINA
  4. XEOMIN [Suspect]
     Active Substance: INCOBOTULINUMTOXINA

REACTIONS (1)
  - Therapeutic response decreased [Unknown]

NARRATIVE: CASE EVENT DATE: 20230101
